FAERS Safety Report 8491967-3 (Version None)
Quarter: 2012Q3

REPORT INFORMATION
  Report Type: 
  Country: None (occurrence: None)
  Receive Date: 20120706
  Receipt Date: 20120629
  Transmission Date: 20120928
  Serious: Yes (Hospitalization, Other)
  Sender: FDA-Public Use
  Company Number: US-TEVA-342341USA

PATIENT
  Sex: Female
  Weight: 63.56 kg

DRUGS (8)
  1. GLIMEPIRIDE [Suspect]
     Indication: TYPE 2 DIABETES MELLITUS
     Dosage: 8 MILLIGRAM;
     Route: 048
     Dates: start: 20020101, end: 20110101
  2. SELENIUM [Concomitant]
     Indication: MEDICAL DIET
  3. VITAMIN B COMPLEX CAP [Concomitant]
  4. AVANDIA [Suspect]
     Indication: DIABETES MELLITUS
     Dates: end: 20110101
  5. CRANBERRY EXTRACT [Concomitant]
     Indication: CYSTITIS
  6. METFORMIN HCL [Suspect]
     Indication: DIABETES MELLITUS
     Dosage: 2000 MILLIGRAM;
     Dates: start: 20020101, end: 20110101
  7. THYROID PILL [Concomitant]
     Indication: HYPOTHYROIDISM
  8. SELENIUM [Concomitant]
     Indication: MEMORY IMPAIRMENT

REACTIONS (20)
  - LOSS OF CONSCIOUSNESS [None]
  - MUSCULAR WEAKNESS [None]
  - CONTUSION [None]
  - CHEST PAIN [None]
  - MOVEMENT DISORDER [None]
  - NERVE INJURY [None]
  - JOINT INJURY [None]
  - SCIATICA [None]
  - MUSCLE SPASMS [None]
  - WEIGHT DECREASED [None]
  - FALL [None]
  - SPEECH DISORDER [None]
  - AMNESIA [None]
  - LOCAL SWELLING [None]
  - DIZZINESS [None]
  - CIRCUMSTANCE OR INFORMATION CAPABLE OF LEADING TO MEDICATION ERROR [None]
  - OVERDOSE [None]
  - NAUSEA [None]
  - MUSCULOSKELETAL PAIN [None]
  - DISORIENTATION [None]
